FAERS Safety Report 23831357 (Version 2)
Quarter: 2024Q2

REPORT INFORMATION
  Report Type: Spontaneous
  Country: US (occurrence: US)
  Receive Date: 20240508
  Receipt Date: 20240610
  Transmission Date: 20240716
  Serious: No
  Sender: FDA-Public Use
  Company Number: US-PFIZER INC-202400099276

PATIENT
  Age: 13 Year
  Sex: Male

DRUGS (1)
  1. NGENLA [Suspect]
     Active Substance: SOMATROGON-GHLA
     Dosage: 25.5 MG, WEEKLY

REACTIONS (4)
  - Injection site bruising [Unknown]
  - Injection site rash [Unknown]
  - Discomfort [Unknown]
  - Injection site pain [Unknown]
